FAERS Safety Report 7814878-2 (Version None)
Quarter: 2011Q4

REPORT INFORMATION
  Report Type: 
  Country: None (occurrence: None)
  Receive Date: 20111013
  Receipt Date: 20111013
  Transmission Date: 20120403
  Serious: Yes (Other)
  Sender: FDA-Public Use
  Company Number: None

PATIENT
  Age: 82 Year
  Sex: Male
  Weight: 95.2554 kg

DRUGS (1)
  1. EXFORGE HCT [Suspect]
     Indication: HYPERTENSION
     Dosage: 10/320/25 MG
     Dates: start: 20101001, end: 20110301

REACTIONS (4)
  - OEDEMA PERIPHERAL [None]
  - FATIGUE [None]
  - MUSCLE SPASMS [None]
  - BALANCE DISORDER [None]
